FAERS Safety Report 12906268 (Version 15)
Quarter: 2020Q4

REPORT INFORMATION
  Report Type: Spontaneous
  Country: US (occurrence: US)
  Receive Date: 20161103
  Receipt Date: 20201211
  Transmission Date: 20210113
  Serious: No
  Sender: FDA-Public Use
  Company Number: US-PFIZER INC-2016508183

PATIENT
  Age: 76 Year
  Sex: Male
  Weight: 71 kg

DRUGS (16)
  1. ASTRAGALUS GUMMIFER [Concomitant]
     Active Substance: UNSPECIFIED INGREDIENT
     Dosage: 250 MG, UNK
  2. BIOFLAVONOID [Concomitant]
     Active Substance: BIOFLAVONOIDS
     Dosage: UNK
  3. ONDANSETRON HCL [Concomitant]
     Active Substance: ONDANSETRON HYDROCHLORIDE
     Dosage: 8 MG, UNK
     Route: 048
  4. VITAMIN B COMPLEX [Concomitant]
     Active Substance: CYANOCOBALAMIN\DEXPANTHENOL\NIACINAMIDE\PYRIDOXINE HYDROCHLORIDE\RIBOFLAVIN 5^-PHOSPHATE SODIUM\THIAMINE HYDROCHLORIDE\VITAMIN B COMPLEX
     Dosage: UNK
     Route: 048
  5. SUTENT [Suspect]
     Active Substance: SUNITINIB MALATE
     Dosage: 37.5 MG, CYCLIC (DAILY 7 DAYS ON/7 DAYS OFF)
     Route: 048
  6. CHROMIUM PICOLINATE [Concomitant]
     Active Substance: CHROMIUM PICOLINATE
     Dosage: 1000 UG, UNK
     Route: 048
  7. SUTENT [Suspect]
     Active Substance: SUNITINIB MALATE
     Dosage: ALTERNATING 37.5/50 MG DOSING (1 CAPSULE DAILY FOR 7 DAYS FOLLOWED BY 7 DAYS OFF)
     Route: 048
     Dates: start: 20151014
  8. IBUPROFEN. [Concomitant]
     Active Substance: IBUPROFEN
     Dosage: 800 MG, DAILY (1 TABLET DAILY)
     Route: 048
  9. LEVOTHYROXINE SODIUM. [Concomitant]
     Active Substance: LEVOTHYROXINE SODIUM
     Dosage: 25 UG, DAILY (1 TABLET, DAILY)
     Route: 048
  10. ZOLPIDEM TARTRATE. [Concomitant]
     Active Substance: ZOLPIDEM TARTRATE
     Dosage: 5 MG, 1 TABLET AT BEDTIME AS NEEDED(MAY REPEAT ONCE IF NEEDED)
     Route: 048
  11. SUTENT [Suspect]
     Active Substance: SUNITINIB MALATE
     Indication: METASTATIC RENAL CELL CARCINOMA
     Dosage: 50 MG, CYCLIC (DAILY FOR 4 WEEKS, THEN OFF 2 WEEKS)
     Route: 048
     Dates: start: 20140731
  12. ALPHA LIPOIC ACID [Concomitant]
     Active Substance: .ALPHA.-LIPOIC ACID
     Dosage: 300 MG, UNK
  13. SUTENT [Suspect]
     Active Substance: SUNITINIB MALATE
     Dosage: 37.5 MG (14 ON/7 DAYS OFF)
     Route: 048
     Dates: start: 20150427
  14. SUTENT [Suspect]
     Active Substance: SUNITINIB MALATE
     Dosage: 50 MG, UNK
  15. SUTENT [Suspect]
     Active Substance: SUNITINIB MALATE
     Dosage: 50 MG, CYCLIC [7 DAYS ON AND 7 DAYS OFF AND REPEAT (ALTERNATING) TO COMPLETE 28 DAYS CYCLE]
  16. NYSTOP [Concomitant]
     Active Substance: NYSTATIN
     Dosage: APPLY 2-3 TIMES DAILY TO AFFECTED AREAS

REACTIONS (17)
  - Fatigue [Recovered/Resolved]
  - Sciatica [Unknown]
  - Pruritus genital [Unknown]
  - Oral pain [Unknown]
  - Rash [Unknown]
  - Arthralgia [Unknown]
  - Poor quality sleep [Unknown]
  - Stomatitis [Recovering/Resolving]
  - Arthralgia [Recovered/Resolved]
  - Radiation skin injury [Unknown]
  - Glossodynia [Unknown]
  - Yawning [Unknown]
  - Neoplasm progression [Unknown]
  - Abdominal discomfort [Unknown]
  - Pain in extremity [Unknown]
  - Musculoskeletal discomfort [Unknown]
  - Osteoporosis [Unknown]
